FAERS Safety Report 5909896-5 (Version None)
Quarter: 2008Q4

REPORT INFORMATION
  Report Type: 
  Country: None (occurrence: None)
  Receive Date: 20081007
  Receipt Date: 20080930
  Transmission Date: 20090506
  Serious: Yes (Other)
  Sender: FDA-Public Use
  Company Number: PHHY2008JP21825

PATIENT
  Age: 83 Year
  Sex: Male

DRUGS (3)
  1. CYCLOSPORINE [Suspect]
     Indication: PSORIASIS
     Dosage: UNK
     Route: 048
     Dates: start: 19900101
  2. METHOTREXATE SODIUM [Suspect]
     Indication: PSORIASIS
     Dosage: UNK
     Route: 065
     Dates: start: 19900101
  3. PUVA [Suspect]
     Indication: PSORIASIS
     Dosage: 393 J/CM2 OVER 13 YEARS
     Dates: start: 19900101

REACTIONS (4)
  - ACTINIC KERATOSIS [None]
  - NODULE [None]
  - SKIN EROSION [None]
  - SQUAMOUS CELL CARCINOMA [None]
